FAERS Safety Report 4682281-2 (Version None)
Quarter: 2005Q2

REPORT INFORMATION
  Report Type: 
  Country: None (occurrence: None)
  Receive Date: 20050531
  Receipt Date: 20050201
  Transmission Date: 20051028
  Serious: No
  Sender: FDA-Public Use
  Company Number: 2005BI002853

PATIENT
  Age: 79 Year
  Sex: Male

DRUGS (3)
  1. AMEVIVE [Suspect]
     Indication: PSORIASIS
     Dosage: 15 MG; QW; IM  ;  15 MG; QW; IM  ;   UNKNOWN; IM
     Route: 030
     Dates: start: 20030604, end: 20030901
  2. AMEVIVE [Suspect]
     Indication: PSORIASIS
     Dosage: 15 MG; QW; IM  ;  15 MG; QW; IM  ;   UNKNOWN; IM
     Route: 030
     Dates: start: 20040312, end: 20040601
  3. AMEVIVE [Suspect]
     Indication: PSORIASIS
     Dosage: 15 MG; QW; IM  ;  15 MG; QW; IM  ;   UNKNOWN; IM
     Route: 030
     Dates: start: 20041101

REACTIONS (1)
  - CD4 LYMPHOCYTES DECREASED [None]
